FAERS Safety Report 9406905 (Version 1)
Quarter: 2013Q3

REPORT INFORMATION
  Report Type: Report from Study
  Country: US (occurrence: US)
  Receive Date: 20130718
  Receipt Date: 20130718
  Transmission Date: 20140515
  Serious: No
  Sender: FDA-Public Use
  Company Number: PHEH2013US015188

PATIENT
  Age: 87 Year
  Sex: Male

DRUGS (7)
  1. TASIGNA [Suspect]
     Dosage: 2 DF, BID
     Route: 048
  2. PROSCAR [Concomitant]
     Dosage: 5 MG, UNK
  3. FINASTERIDE [Concomitant]
     Dosage: 1 MG, UNK
  4. SENNA [Concomitant]
     Dosage: 8.6 MG, UNK
  5. TAMSULOSIN [Concomitant]
     Dosage: 0.4 MG, UNK
  6. OMEPRAZOLE [Concomitant]
     Dosage: 10 MG, UNK
  7. AMLODIPINE [Concomitant]
     Dosage: 10 MG, UNK

REACTIONS (4)
  - Diarrhoea [Unknown]
  - Flatulence [Unknown]
  - Blood sodium decreased [Unknown]
  - Weight increased [Unknown]
